FAERS Safety Report 7716904-8 (Version None)
Quarter: 2011Q3

REPORT INFORMATION
  Report Type: 
  Country: None (occurrence: None)
  Receive Date: 20110829
  Receipt Date: 20110221
  Transmission Date: 20111222
  Serious: Yes (Other)
  Sender: FDA-Public Use
  Company Number: PHHY2011US16055

PATIENT
  Sex: Female

DRUGS (12)
  1. SIMAVASTATIN [Concomitant]
     Dosage: 40 MG, QD
  2. PROTEIN SUPPLEMENTS [Concomitant]
     Dosage: 40 MG, QD
  3. ARICEPT [Suspect]
     Dosage: UNK UKN, UNK
  4. VITAMIN D [Concomitant]
     Dosage: 2000 IU, QD
  5. EXELON [Suspect]
     Dosage: 9.5 MG, QD
  6. FIBER SUPPLEMENT [Concomitant]
     Dosage: UNK UKN, UNK
  7. CALCIUM CARBONATE [Concomitant]
     Dosage: 600 MG, UNK
  8. SYNTHROID [Concomitant]
     Dosage: 100 UG, QD
  9. IBANDRONATE SODIUM [Concomitant]
     Dosage: 150 MG, QMO
  10. CITALOPRAM HYDROBROMIDE [Concomitant]
     Dosage: 20 MG, UNK
  11. NAMENDA [Concomitant]
     Dosage: 10 MG, BID
  12. VITAMIN D [Concomitant]
     Dosage: 400 IU, BID

REACTIONS (3)
  - ABDOMINAL DISCOMFORT [None]
  - INCONTINENCE [None]
  - SKIN IRRITATION [None]
